FAERS Safety Report 19013091 (Version 1)
Quarter: 2021Q1

REPORT INFORMATION
  Report Type: Spontaneous
  Country: SI (occurrence: SI)
  Receive Date: 20210316
  Receipt Date: 20210316
  Transmission Date: 20210420
  Serious: Yes (Other)
  Sender: FDA-Public Use
  Company Number: SI-ROCHE-2786192

PATIENT
  Age: 74 Year
  Sex: Male

DRUGS (6)
  1. ALOPURINOL [Concomitant]
     Active Substance: ALLOPURINOL
     Dosage: ACCORDING TO THE SCHEME
  2. MABTHERA [Suspect]
     Active Substance: RITUXIMAB
     Indication: B-CELL LYMPHOMA
     Route: 041
     Dates: start: 20210203, end: 20210203
  3. DORMICUM [Concomitant]
  4. REGLAN [Concomitant]
     Active Substance: METOCLOPRAMIDE HYDROCHLORIDE
     Dosage: 3X1
  5. PANTHOL [Concomitant]
  6. NOLPAZA [Concomitant]
     Active Substance: PANTOPRAZOLE SODIUM

REACTIONS (4)
  - Hypertension [Recovered/Resolved]
  - Chest discomfort [Recovered/Resolved]
  - Oxygen saturation decreased [Recovered/Resolved]
  - Dyspnoea [Recovered/Resolved]

NARRATIVE: CASE EVENT DATE: 20210203
